FAERS Safety Report 7320425-4 (Version None)
Quarter: 2011Q1

REPORT INFORMATION
  Report Type: 
  Country: None (occurrence: None)
  Receive Date: 20110228
  Receipt Date: 20110218
  Transmission Date: 20110831
  Serious: Yes (Other)
  Sender: FDA-Public Use
  Company Number: A0914456A

PATIENT
  Sex: Female

DRUGS (1)
  1. ADVAIR DISKUS 100/50 [Suspect]
     Indication: ASTHMA
     Dosage: 1PUFF THREE TIMES PER DAY
     Route: 055
     Dates: start: 20110204, end: 20110217

REACTIONS (7)
  - WHEEZING [None]
  - CONDITION AGGRAVATED [None]
  - RESPIRATORY DISORDER [None]
  - COUGH [None]
  - DRUG ADMINISTRATION ERROR [None]
  - RESPIRATORY DISTRESS [None]
  - ASTHMA [None]
